FAERS Safety Report 9459813 (Version 1)
Quarter: 2013Q3

REPORT INFORMATION
  Report Type: Spontaneous
  Country: CO (occurrence: CO)
  Receive Date: 20130815
  Receipt Date: 20130815
  Transmission Date: 20140515
  Serious: Yes (Other)
  Sender: FDA-Public Use
  Company Number: CO-PFIZER INC-2013234258

PATIENT
  Age: 85 Year
  Sex: Female

DRUGS (3)
  1. XALATAN [Suspect]
     Indication: PROPHYLAXIS
     Dosage: 2.5 ML, 1X/DAY
     Route: 047
     Dates: start: 2009
  2. ISOPTIN [Concomitant]
     Indication: HYPERTENSION
     Dosage: 240 MG, 1X/DAY
     Route: 048
     Dates: start: 2008
  3. TRIMEBUTINE [Concomitant]
     Indication: IRRITABLE BOWEL SYNDROME
     Dosage: 200 MG, 2X/DAY
     Route: 048
     Dates: start: 2011

REACTIONS (1)
  - Cataract [Unknown]
